FAERS Safety Report 12115733 (Version 3)
Quarter: 2016Q3

REPORT INFORMATION
  Report Type: Spontaneous
  Country: US (occurrence: US)
  Receive Date: 20160225
  Receipt Date: 20160719
  Transmission Date: 20161109
  Serious: Yes (Other)
  Sender: FDA-Public Use
  Company Number: US-PFIZER INC-2016104387

PATIENT
  Age: 54 Year
  Sex: Female
  Weight: 60.78 kg

DRUGS (12)
  1. IBRANCE [Suspect]
     Active Substance: PALBOCICLIB
     Indication: BREAST CANCER
     Dosage: 75 MG, 2X/WEEK (ON MONDAY AND THURSDAY)
  2. OXYCODONE [Concomitant]
     Active Substance: OXYCODONE
     Dosage: 10 MG, EVERY SIX HOURS
     Route: 048
  3. IBRANCE [Suspect]
     Active Substance: PALBOCICLIB
     Dosage: 75 MG, ALTERNATE DAY (EVERY 2 DAYS)
     Dates: start: 20150911
  4. LETROZOLE. [Suspect]
     Active Substance: LETROZOLE
     Dosage: UNK
     Dates: start: 20150617
  5. POTASSIUM CHLORIDE. [Concomitant]
     Active Substance: POTASSIUM CHLORIDE
     Dosage: 10 MEQ, 1X/DAY, X 30 DAYS
     Route: 048
     Dates: start: 20160405, end: 20160704
  6. TIZANIDINE. [Concomitant]
     Active Substance: TIZANIDINE
     Dosage: 6 MG, 3X/DAY
     Route: 048
  7. IBRANCE [Suspect]
     Active Substance: PALBOCICLIB
     Dosage: 75 MG, UNK
     Route: 048
     Dates: start: 20150617
  8. IBRANCE [Suspect]
     Active Substance: PALBOCICLIB
     Dosage: 75 MG, DAILY
     Dates: start: 20150709, end: 20150825
  9. TOPIRAMATE. [Concomitant]
     Active Substance: TOPIRAMATE
     Dosage: 50 MG, 2X/DAY(BY MOUTH TWICE A DAY X60 DAYS)
     Route: 048
  10. IBRANCE [Suspect]
     Active Substance: PALBOCICLIB
     Dosage: 75 MG, UNK [75 MG X 2 WEEK X 3 / (ILLEGIBLE)]
     Route: 048
     Dates: start: 20150617
  11. DURAGESIC [Concomitant]
     Active Substance: FENTANYL
     Dosage: 75 MCG/HR PATCH 72 HOUR 1 PATCH TO SKIN EVERY 72 HOURS
     Route: 061
  12. MARINOL [Concomitant]
     Active Substance: DRONABINOL
     Dosage: 2.5 MG, 2X/DAY
     Route: 048

REACTIONS (8)
  - Musculoskeletal pain [Unknown]
  - Spinal pain [Unknown]
  - Anxiety [Unknown]
  - Constipation [Unknown]
  - Fatigue [Unknown]
  - Neutropenia [Not Recovered/Not Resolved]
  - Back pain [Unknown]
  - Agranulocytosis [Recovering/Resolving]

NARRATIVE: CASE EVENT DATE: 20150709
